FAERS Safety Report 8420282-9 (Version None)
Quarter: 2012Q2

REPORT INFORMATION
  Report Type: 
  Country: None (occurrence: None)
  Receive Date: 20120607
  Receipt Date: 20120531
  Transmission Date: 20120825
  Serious: Yes (Other)
  Sender: FDA-Public Use
  Company Number: CHPA2012US010852

PATIENT
  Age: 41 Year
  Sex: Female

DRUGS (2)
  1. BENEFIBER SUGAR FREE [Suspect]
     Indication: NUTRITIONAL SUPPORT
     Dosage: 9 DF, THROUGHOUT THE DAY
     Route: 048
     Dates: start: 20080101
  2. BENEFIBER PLUS CALCIUM WITH WHEAT DEXTRIN [Suspect]
     Indication: NUTRITIONAL SUPPORT
     Dosage: 9 DF, THOUGHOUT THE DAY
     Route: 048
     Dates: start: 20080101

REACTIONS (1)
  - OVARIAN CYST [None]
